FAERS Safety Report 8851408 (Version 1)
Quarter: 2012Q4

REPORT INFORMATION
  Report Type: 
  Country: FR (occurrence: FR)
  Receive Date: 20121021
  Receipt Date: 20121021
  Transmission Date: 20130627
  Serious: Yes (Hospitalization)
  Sender: FDA-Public Use
  Company Number: FR-BRISTOL-MYERS SQUIBB COMPANY-17034000

PATIENT
  Age: 68 Year
  Sex: Male

DRUGS (4)
  1. COUMADIN TABS [Suspect]
  2. BUFLOMEDIL [Concomitant]
  3. ALLOPURINOL [Concomitant]
  4. EXFORGE [Concomitant]

REACTIONS (5)
  - Rectal haemorrhage [Recovered/Resolved]
  - Melaena [Recovered/Resolved]
  - Vomiting [Recovered/Resolved]
  - Dehydration [Recovered/Resolved]
  - Renal failure [Recovered/Resolved]
